FAERS Safety Report 5907976-1 (Version None)
Quarter: 2008Q4

REPORT INFORMATION
  Report Type: 
  Country: None (occurrence: None)
  Receive Date: 20081003
  Receipt Date: 20080922
  Transmission Date: 20090506
  Serious: Yes (Other)
  Sender: FDA-Public Use
  Company Number: US-PFIZER INC-2008075032

PATIENT
  Sex: Female
  Weight: 90.7 kg

DRUGS (4)
  1. CHANTIX [Suspect]
     Indication: SMOKING CESSATION THERAPY
     Dates: start: 20080819, end: 20080903
  2. XANAX [Suspect]
     Indication: ANXIETY
  3. CELEXA [Concomitant]
  4. CYMBALTA [Concomitant]

REACTIONS (6)
  - AGGRESSION [None]
  - ANGER [None]
  - ANXIETY [None]
  - FEELING ABNORMAL [None]
  - INSOMNIA [None]
  - TREMOR [None]
